FAERS Safety Report 10610325 (Version 1)
Quarter: 2014Q4

REPORT INFORMATION
  Report Type: Spontaneous
  Country: US (occurrence: US)
  Receive Date: 20141126
  Receipt Date: 20141126
  Transmission Date: 20150529
  Serious: Yes (Other)
  Sender: FDA-Public Use
  Company Number: US-ASTRAZENECA-2014SE88307

PATIENT
  Age: 993 Month
  Sex: Female

DRUGS (31)
  1. PRAVASTATIN SODIUM. [Concomitant]
     Active Substance: PRAVASTATIN SODIUM
     Dosage: 80 MG, ONE HALF TABLET EVERY NIGHT AT BED TIME
     Route: 048
  2. KLOR-CON [Concomitant]
     Active Substance: POTASSIUM CHLORIDE
     Dosage: M-20 ONE HALF TAB DAILY
     Route: 048
  3. NEXIUM [Suspect]
     Active Substance: ESOMEPRAZOLE MAGNESIUM
     Route: 048
  4. ADVAIR HFA [Concomitant]
     Active Substance: FLUTICASONE PROPIONATE\SALMETEROL XINAFOATE
     Dosage: 250-50 MCG DOSE ONE PUFF TWICE DAILY INHALATION
     Route: 055
  5. PROBIOTIC [Concomitant]
     Active Substance: PROBIOTICS NOS
     Route: 048
  6. EXTRA STRENGTH PAIN RELIVER [Concomitant]
     Indication: PAIN
     Dosage: 250-50-65 MG TAB, 2 TABLETS EVERY 6 HOURS
     Route: 048
  7. AMLODIPINE BESYLATE. [Concomitant]
     Active Substance: AMLODIPINE BESYLATE
     Dosage: 10 MG, ONE HALF TABLET EVERY NIGHT AT BED TIME
     Route: 048
  8. RANITIDINE HCL [Concomitant]
     Active Substance: RANITIDINE HYDROCHLORIDE
     Dosage: 150 MG, ONE CAPSULE EVERY TIME AT BED NIGHT
     Route: 048
  9. CITRACAL CALCIUM + D [Concomitant]
     Dosage: 600-40-500 MG ONE TABLET DAILY
     Route: 048
  10. MAGNESIUM [Concomitant]
     Active Substance: MAGNESIUM
     Route: 048
  11. FLUTICASONE PROPIONATE. [Concomitant]
     Active Substance: FLUTICASONE PROPIONATE
     Dosage: 50 MCG/ACT ONE SPRAY EACH NOSTRIL TWICE PER DAY
     Route: 045
  12. METAMUCIL [Concomitant]
     Active Substance: PLANTAGO SEED
     Dosage: 0.52 CM ONE CAP TWICE A DAY ORAL
  13. SODIUM CHLORIDE. [Concomitant]
     Active Substance: SODIUM CHLORIDE
     Dosage: 7 % ONE VIAL TWICE A DAY INHALATION
     Route: 055
  14. ZINC [Concomitant]
     Active Substance: ZINC\ZINC CHLORIDE
  15. ATENOLOL. [Suspect]
     Active Substance: ATENOLOL
     Route: 048
  16. CETIRIZINE HCL [Concomitant]
     Active Substance: CETIRIZINE HYDROCHLORIDE
     Route: 048
  17. CIPROFLOXACIN HCL [Concomitant]
     Active Substance: CIPROFLOXACIN HYDROCHLORIDE
     Dosage: 500 MG TABLET, ONE TABLET EVERY 12 HR FOR 10 DAYS ONLY
  18. VITAMIN B COMPLEX [Concomitant]
     Active Substance: CYANOCOBALAMIN\DEXPANTHENOL\NIACINAMIDE\PYRIDOXINE HYDROCHLORIDE\RIBOFLAVIN 5^-PHOSPHATE SODIUM\THIAMINE HYDROCHLORIDE\VITAMIN B COMPLEX
  19. CENTRUM SILVER [Concomitant]
     Active Substance: VITAMINS
     Route: 048
  20. ALBUTEROL SULFATE. [Concomitant]
     Active Substance: ALBUTEROL SULFATE
     Dosage: 2.5 MG/3ML, 0.0023 % ML ONE VIAL THREE TIMES PER DAY INHALATION
     Route: 055
  21. AREDS [Concomitant]
     Route: 048
  22. IRON [Concomitant]
     Active Substance: IRON
     Dosage: 325 (35 FE) ONE TABLET DAILY
  23. NEXIUM 24HR [Concomitant]
     Active Substance: ESOMEPRAZOLE MAGNESIUM
     Route: 048
  24. VITAMIN D [Concomitant]
     Active Substance: CHOLECALCIFEROL
     Dosage: 50000 UNIT, ONE CAPSULE WEEKLY ORAL
  25. THERATEARS [Concomitant]
     Active Substance: CARBOXYMETHYLCELLULOSE SODIUM
     Indication: DRY MOUTH
     Dosage: 0.25 ML ONE OR TWO DROPS EACH EYE AS NEEDED
     Route: 047
  26. FLUCONAZOLE. [Concomitant]
     Active Substance: FLUCONAZOLE
     Dosage: 100 MG ONE DAILY FOR 7 DAYS
     Route: 048
  27. SULFAMETHOXAZOLE [Concomitant]
     Active Substance: SULFAMETHOXAZOLE
     Dosage: DS- 800-160 MG ONE TABLET EVERY 12 HOUR FOR 10 DAYS
     Route: 048
  28. IPRATROPIUM BROMIDE. [Concomitant]
     Active Substance: IPRATROPIUM BROMIDE
     Dosage: 0.02% ML ONE VIAL THREE TIMES PER DAY ALBUTEROL INHALATION
     Route: 055
  29. MUCINEX [Concomitant]
     Active Substance: GUAIFENESIN
     Dosage: 60-1200 MG TABLET ONE TABLET TWICE A DAY ORAL
  30. VITAMIN C [Concomitant]
     Active Substance: ASCORBIC ACID
  31. OCUVITE-LUTEIN [Concomitant]

REACTIONS (3)
  - Bronchitis [Unknown]
  - Pneumonia [Not Recovered/Not Resolved]
  - Hypertension [Unknown]

NARRATIVE: CASE EVENT DATE: 201410
